FAERS Safety Report 9999907 (Version 1)
Quarter: 2014Q1

REPORT INFORMATION
  Report Type: Spontaneous
  Country: US (occurrence: None)
  Receive Date: 20140227
  Receipt Date: 20140227
  Transmission Date: 20141002
  Serious: Yes (Other)
  Sender: FDA-Public Use
  Company Number: SYM-2013-05091

PATIENT
  Age: 64 Year
  Sex: Female

DRUGS (5)
  1. TARGRETIN [Suspect]
     Indication: MYCOSIS FUNGOIDES STAGE II
     Route: 048
  2. ONTAK [Suspect]
     Indication: MYCOSIS FUNGOIDES STAGE II
     Dosage: 15 MG/KG, 3 IN 21 D, INTRAVENOUS INFUSION
     Route: 042
  3. DEXAMETHASONE (DEXAMETHASONE) (DEXAMETHASONE) [Concomitant]
  4. DIPHENHYDRAMINE (DIPHENHYDRAMINE) (DIPHENHYDRAMINE) [Concomitant]
  5. ACETAMINOPHEN [Concomitant]

REACTIONS (1)
  - Hypersensitivity [None]
